FAERS Safety Report 6662995-5 (Version None)
Quarter: 2010Q2

REPORT INFORMATION
  Report Type: 
  Country: None (occurrence: None)
  Receive Date: 20100401
  Receipt Date: 20100330
  Transmission Date: 20101027
  Serious: Yes (Hospitalization)
  Sender: FDA-Public Use
  Company Number: FR-EISAI INC.-E2020-06184-SPO-FR

PATIENT
  Sex: Female

DRUGS (6)
  1. ARICEPT [Suspect]
     Indication: DEMENTIA
     Route: 048
     Dates: start: 20100124, end: 20100224
  2. TENORMIN [Concomitant]
     Indication: BLOOD PRESSURE INCREASED
     Route: 048
     Dates: end: 20100224
  3. TENORMIN [Concomitant]
     Route: 048
     Dates: start: 20100225, end: 20100301
  4. ELISOR [Concomitant]
     Indication: DYSLIPIDAEMIA
     Route: 048
     Dates: end: 20100301
  5. LEVOTHYROX [Concomitant]
     Indication: HYPOTHYROIDISM
     Route: 048
     Dates: start: 20091201
  6. LOVENOX [Concomitant]
     Indication: MOBILITY DECREASED

REACTIONS (1)
  - CONVULSION [None]
